FAERS Safety Report 9745707 (Version 1)
Quarter: 2013Q4

REPORT INFORMATION
  Report Type: Spontaneous
  Country: US (occurrence: None)
  Receive Date: 20131206
  Receipt Date: 20131206
  Transmission Date: 20140711
  Serious: No
  Sender: FDA-Public Use
  Company Number: None

PATIENT
  Age: 63 Year
  Sex: Male

DRUGS (2)
  1. LORAZEPAM [Suspect]
     Route: 048
     Dates: start: 20131204, end: 20131205
  2. VYTORIN 10/40 QHS [Concomitant]

REACTIONS (2)
  - Drug ineffective [None]
  - Product substitution issue [None]
